FAERS Safety Report 13849535 (Version 3)
Quarter: 2017Q3

REPORT INFORMATION
  Report Type: Spontaneous
  Country: US (occurrence: US)
  Receive Date: 20170809
  Receipt Date: 20170904
  Transmission Date: 20171127
  Serious: No
  Sender: FDA-Public Use
  Company Number: US-PFIZER INC-2017340866

PATIENT
  Age: 57 Year
  Sex: Female
  Weight: 56.69 kg

DRUGS (4)
  1. IBRANCE [Suspect]
     Active Substance: PALBOCICLIB
     Dosage: 125 MG, CYCLIC (DAY 1-21 Q 28 DAYS)
     Route: 048
     Dates: start: 20170726, end: 20170807
  2. IBRANCE [Suspect]
     Active Substance: PALBOCICLIB
     Indication: BREAST CANCER
     Dosage: 125 MG, CYCLIC (DAY 1-21 Q 28 DAYS)
     Route: 048
     Dates: start: 20170714
  3. IBRANCE [Suspect]
     Active Substance: PALBOCICLIB
     Dosage: 125 MG, CYCLIC (DAY 1-21 Q 28 DAYS)
     Route: 048
     Dates: start: 20170816
  4. ANASTROZOLE. [Suspect]
     Active Substance: ANASTROZOLE
     Dosage: UNK

REACTIONS (8)
  - Gastrointestinal viral infection [Unknown]
  - Vomiting [Unknown]
  - Alopecia [Unknown]
  - Eye disorder [Unknown]
  - Diarrhoea [Unknown]
  - Nail discolouration [Unknown]
  - Headache [Unknown]
  - Eye pain [Unknown]

NARRATIVE: CASE EVENT DATE: 20170721
